FAERS Safety Report 6328270-3 (Version None)
Quarter: 2009Q3

REPORT INFORMATION
  Report Type: 
  Country: None (occurrence: None)
  Receive Date: 20090825
  Receipt Date: 20090210
  Transmission Date: 20100115
  Serious: No
  Sender: FDA-Public Use
  Company Number: US-ABBOTT-09P-163-0503325-00

PATIENT
  Sex: Female
  Weight: 47.67 kg

DRUGS (1)
  1. SYNTHROID [Suspect]
     Indication: AUTOIMMUNE THYROIDITIS
     Dosage: ADJUSTING DOSES
     Route: 048
     Dates: start: 19830101

REACTIONS (6)
  - HYPERTHYROIDISM [None]
  - MUSCLE ATROPHY [None]
  - MUSCLE TIGHTNESS [None]
  - MUSCULOSKELETAL DISCOMFORT [None]
  - RESORPTION BONE INCREASED [None]
  - TREMOR [None]
